FAERS Safety Report 25890357 (Version 1)
Quarter: 2025Q4

REPORT INFORMATION
  Report Type: Spontaneous
  Country: JP (occurrence: JP)
  Receive Date: 20251007
  Receipt Date: 20251007
  Transmission Date: 20260117
  Serious: Yes (Hospitalization)
  Sender: ROCHE
  Company Number: JP-CHUGAI-2025031391

PATIENT
  Age: 88 Year
  Sex: Female

DRUGS (2)
  1. HEMLIBRA [Suspect]
     Active Substance: EMICIZUMAB-KXWH
     Indication: Acquired haemophilia
     Dosage: 6 MILLIGRAM/KILOGRAM, ONCE/WEEK
     Route: 058
     Dates: start: 20241209, end: 20250210
  2. PREDNISOLONE [Suspect]
     Active Substance: PREDNISOLONE
     Indication: Acquired haemophilia
     Dosage: UNK
     Route: 065

REACTIONS (1)
  - Osteonecrosis [Not Recovered/Not Resolved]
